FAERS Safety Report 7699859-4 (Version None)
Quarter: 2011Q3

REPORT INFORMATION
  Report Type: 
  Country: None (occurrence: None)
  Receive Date: 20110822
  Receipt Date: 20110817
  Transmission Date: 20111222
  Serious: Yes (Death, Life-Threatening, Hospitalization)
  Sender: FDA-Public Use
  Company Number: JP-SHIRE-ALL1-2011-02000

PATIENT
  Age: 63 Year
  Sex: Female

DRUGS (7)
  1. CARTEOLOL HYDROCHLORIDE [Concomitant]
     Indication: TACHYCARDIA
     Dosage: 10 MG, UNKNOWN
     Route: 048
  2. UNSPECIFIED VASOPRESSORS [Concomitant]
     Indication: BLOOD PRESSURE DECREASED
     Dosage: UNK, UNKNOWN
     Route: 041
  3. FOSRENOL [Suspect]
     Indication: HYPERPHOSPHATAEMIA
     Dosage: 1500 MG/DAY, UNKNOWN
     Route: 048
     Dates: start: 20091130
  4. ALLOPURINOL [Concomitant]
     Indication: HYPERURICAEMIA
     Dosage: 100 MG, UNKNOWN
     Route: 048
  5. GLAKAY [Concomitant]
     Indication: OSTEOPOROSIS
     Dosage: 45 MG, UNKNOWN
     Route: 048
  6. OMEPRAZON [Concomitant]
     Indication: GASTRIC ULCER
     Dosage: 20 MG, UNKNOWN
     Route: 048
  7. RIKKUNSHI-TO [Concomitant]
     Indication: PRODUCT USED FOR UNKNOWN INDICATION
     Dosage: 5 MG, UNKNOWN
     Route: 048

REACTIONS (5)
  - X-RAY ABNORMAL [None]
  - SEPSIS [None]
  - ILEUS [None]
  - INTESTINAL PERFORATION [None]
  - ABDOMINAL PAIN [None]
